FAERS Safety Report 6970139-5 (Version None)
Quarter: 2010Q3

REPORT INFORMATION
  Report Type: 
  Country: None (occurrence: None)
  Receive Date: 20100908
  Receipt Date: 20100830
  Transmission Date: 20110219
  Serious: Yes (Hospitalization)
  Sender: FDA-Public Use
  Company Number: FR-ASTRAZENECA-2010SE41093

PATIENT
  Age: 21442 Day
  Sex: Female

DRUGS (4)
  1. NEXIUM [Suspect]
     Route: 048
     Dates: start: 20100226, end: 20100315
  2. CELEBREX [Suspect]
     Indication: SCIATICA
     Route: 065
     Dates: start: 20100226, end: 20100315
  3. SEROPLEX [Concomitant]
  4. LYSANXIA [Concomitant]

REACTIONS (1)
  - ECZEMA [None]
